FAERS Safety Report 6458613-1 (Version None)
Quarter: 2009Q4

REPORT INFORMATION
  Report Type: 
  Country: None (occurrence: None)
  Receive Date: 20091126
  Receipt Date: 20091117
  Transmission Date: 20100525
  Serious: Yes (Other)
  Sender: FDA-Public Use
  Company Number: JP-BRISTOL-MYERS SQUIBB COMPANY-14869648

PATIENT
  Age: 72 Year
  Sex: Male

DRUGS (2)
  1. ERBITUX [Suspect]
     Indication: COLON CANCER
     Route: 042
     Dates: start: 20091110
  2. IRINOTECAN HCL [Concomitant]
     Indication: COLON CANCER
     Dates: start: 20091110

REACTIONS (1)
  - VISUAL ACUITY REDUCED [None]
